FAERS Safety Report 20837271 (Version 1)
Quarter: 2022Q2

REPORT INFORMATION
  Report Type: Spontaneous
  Country: US (occurrence: US)
  Receive Date: 20220517
  Receipt Date: 20220517
  Transmission Date: 20220721
  Serious: No
  Sender: FDA-Public Use
  Company Number: US-ALLERGAN-2133326US

PATIENT
  Sex: Female

DRUGS (1)
  1. CANASA [Suspect]
     Active Substance: MESALAMINE
     Indication: Inflammatory bowel disease
     Dosage: 1 DF, QHS
     Dates: start: 2014

REACTIONS (2)
  - Product use issue [Unknown]
  - Insomnia [Not Recovered/Not Resolved]
